FAERS Safety Report 25775145 (Version 2)
Quarter: 2025Q3

REPORT INFORMATION
  Report Type: Spontaneous
  Country: JP (occurrence: JP)
  Receive Date: 20250909
  Receipt Date: 20250922
  Transmission Date: 20251021
  Serious: Yes (Death, Other)
  Sender: TAKEDA
  Company Number: JP-TAKEDA-2025TJP009111

PATIENT
  Age: 85 Year
  Sex: Female

DRUGS (1)
  1. FRUZAQLA [Suspect]
     Active Substance: FRUQUINTINIB
     Indication: Colon cancer recurrent
     Dosage: 5 MILLIGRAM, QD
     Dates: start: 20250815, end: 20250825

REACTIONS (3)
  - Aneurysm ruptured [Fatal]
  - Malaise [Unknown]
  - Proteinuria [Unknown]

NARRATIVE: CASE EVENT DATE: 20250822
